FAERS Safety Report 8506843-7 (Version None)
Quarter: 2012Q3

REPORT INFORMATION
  Report Type: 
  Country: None (occurrence: None)
  Receive Date: 20120712
  Receipt Date: 20120705
  Transmission Date: 20120928
  Serious: Yes (Other)
  Sender: FDA-Public Use
  Company Number: DE-BAYER-2012-064235

PATIENT
  Age: 47 Year
  Sex: Female
  Weight: 78 kg

DRUGS (2)
  1. ESTRADIOL VALERATE/DIENOGEST [Suspect]
     Indication: MIGRAINE
  2. ESTRADIOL VALERATE/DIENOGEST [Suspect]
     Indication: MENOPAUSE
     Dosage: UNK
     Dates: start: 20120601, end: 20120101

REACTIONS (3)
  - PRURITUS [None]
  - DEPRESSION [None]
  - HAEMATOMA [None]
